FAERS Safety Report 18141760 (Version 1)
Quarter: 2020Q3

REPORT INFORMATION
  Report Type: Spontaneous
  Country: CN (occurrence: CN)
  Receive Date: 20200812
  Receipt Date: 20200812
  Transmission Date: 20201103
  Serious: Yes (Hospitalization)
  Sender: FDA-Public Use
  Company Number: CN-EISAI MEDICAL RESEARCH-EC-2020-078524

PATIENT
  Age: 46 Year
  Sex: Female

DRUGS (1)
  1. HALAVEN [Suspect]
     Active Substance: ERIBULIN MESYLATE
     Indication: BREAST CANCER
     Route: 041
     Dates: start: 20200728, end: 20200728

REACTIONS (4)
  - Headache [Unknown]
  - Syncope [Unknown]
  - Cerebral haemorrhage [Not Recovered/Not Resolved]
  - CSF volume increased [Not Recovered/Not Resolved]

NARRATIVE: CASE EVENT DATE: 20200729
